FAERS Safety Report 19844730 (Version 1)
Quarter: 2021Q3

REPORT INFORMATION
  Report Type: Spontaneous
  Country: FR (occurrence: FR)
  Receive Date: 20210916
  Receipt Date: 20210916
  Transmission Date: 20211014
  Serious: Yes (Other)
  Sender: FDA-Public Use
  Company Number: FR-PFIZER INC-202101154590

PATIENT
  Age: 23 Year
  Sex: Male

DRUGS (4)
  1. COCAINE [Suspect]
     Active Substance: COCAINE
     Dosage: UNK
     Dates: start: 20201026
  2. LYRICA [Suspect]
     Active Substance: PREGABALIN
     Dosage: 7 DF, SINGLE
     Dates: start: 20201027
  3. MDMA [Suspect]
     Active Substance: MIDOMAFETAMINE
     Dosage: UNK
     Dates: start: 20201026
  4. RIVOTRIL [Suspect]
     Active Substance: CLONAZEPAM
     Dosage: 7 DF, SINGLE
     Dates: start: 20201027

REACTIONS (1)
  - Drug abuse [Recovered/Resolved]

NARRATIVE: CASE EVENT DATE: 20201028
